FAERS Safety Report 6697421-3 (Version None)
Quarter: 2010Q2

REPORT INFORMATION
  Report Type: 
  Country: None (occurrence: None)
  Receive Date: 20100426
  Receipt Date: 20100419
  Transmission Date: 20101027
  Serious: Yes (Other)
  Sender: FDA-Public Use
  Company Number: CHPA2010US03465

PATIENT
  Age: 64 Year
  Sex: Female
  Weight: 72.562 kg

DRUGS (2)
  1. VOLTAREN [Suspect]
     Indication: ARTHRALGIA
     Dosage: UNK, UNK
     Route: 061
     Dates: start: 20060101
  2. VOLTAREN [Suspect]
     Dosage: 4 G, QID
     Route: 061

REACTIONS (4)
  - CEREBROVASCULAR ACCIDENT [None]
  - KNEE ARTHROPLASTY [None]
  - OFF LABEL USE [None]
  - THERAPEUTIC RESPONSE UNEXPECTED [None]
